FAERS Safety Report 9531481 (Version 1)
Quarter: 2013Q3

REPORT INFORMATION
  Report Type: Spontaneous
  Country: US (occurrence: US)
  Receive Date: 20130918
  Receipt Date: 20130918
  Transmission Date: 20140515
  Serious: Yes (Other)
  Sender: FDA-Public Use
  Company Number: US-BAYER-2013-112262

PATIENT
  Sex: Female

DRUGS (2)
  1. BAYER GENUINE ASPIRIN ORIGINAL STRENGTH [Suspect]
     Dosage: UNK
  2. COUMADIN [Concomitant]
     Dosage: UNK

REACTIONS (1)
  - Cerebrovascular accident [None]
